FAERS Safety Report 6061568-5 (Version None)
Quarter: 2009Q1

REPORT INFORMATION
  Report Type: 
  Country: None (occurrence: None)
  Receive Date: 20090130
  Receipt Date: 20090130
  Transmission Date: 20090719
  Serious: No
  Sender: FDA-Public Use
  Company Number: None

PATIENT
  Age: 27 Year
  Sex: Female

DRUGS (1)
  1. ONDANSETRON [Suspect]
     Indication: ABDOMINAL PAIN
     Dosage: 4 MG ONE TIME IV
     Route: 042
     Dates: start: 20090124, end: 20090124

REACTIONS (1)
  - TACHYCARDIA [None]
